FAERS Safety Report 9170420 (Version 1)
Quarter: 2013Q1

REPORT INFORMATION
  Report Type: Spontaneous
  Country: US (occurrence: None)
  Receive Date: 20130315
  Receipt Date: 20130315
  Transmission Date: 20140127
  Serious: Yes (Hospitalization)
  Sender: FDA-Public Use
  Company Number: None

PATIENT
  Age: 56 Year
  Sex: Female
  Weight: 100 kg

DRUGS (7)
  1. DOXORUBICIN LIPOSOMAL [Suspect]
     Indication: LEIOMYOSARCOMA
     Route: 040
     Dates: start: 20120621, end: 20120621
  2. DEXAMETHASONE [Concomitant]
  3. PALONOSETRON [Concomitant]
  4. GAPAPENTIN [Concomitant]
  5. GLIMIPERIDE [Concomitant]
  6. METFORMIN [Concomitant]
  7. SITAGLIPTIN [Concomitant]

REACTIONS (7)
  - Flushing [None]
  - Feeling hot [None]
  - Nausea [None]
  - Loss of consciousness [None]
  - Chest pain [None]
  - Presyncope [None]
  - Infusion related reaction [None]
